FAERS Safety Report 9296315 (Version 1)
Quarter: 2013Q2

REPORT INFORMATION
  Report Type: Spontaneous
  Country: JP (occurrence: JP)
  Receive Date: 20130517
  Receipt Date: 20130517
  Transmission Date: 20140414
  Serious: Yes (Other)
  Sender: FDA-Public Use
  Company Number: JP-ASTRAZENECA-2013SE32920

PATIENT
  Age: 25 Year
  Sex: Female
  Weight: 50 kg

DRUGS (14)
  1. DIPRIVAN [Suspect]
     Indication: GENERAL ANAESTHESIA
     Route: 042
     Dates: start: 201105, end: 201105
  2. DIPRIVAN [Suspect]
     Indication: GENERAL ANAESTHESIA
     Route: 042
     Dates: start: 201112, end: 201112
  3. ATROPINE SULFATE HYDRATE [Concomitant]
     Indication: ANAESTHETIC PREMEDICATION
     Route: 030
  4. OXYGEN [Concomitant]
     Indication: GENERAL ANAESTHESIA
     Dosage: DOSE UNKNOWN
     Route: 055
     Dates: start: 201105, end: 201105
  5. OXYGEN [Concomitant]
     Indication: INDUCTION OF ANAESTHESIA
     Dosage: DOSE UNKNOWN
     Route: 055
     Dates: start: 201105, end: 201105
  6. OXYGEN [Concomitant]
     Indication: GENERAL ANAESTHESIA
     Route: 055
     Dates: start: 201112, end: 201112
  7. OXYGEN [Concomitant]
     Indication: INDUCTION OF ANAESTHESIA
     Route: 055
     Dates: start: 201112, end: 201112
  8. MIDAZOLAM [Concomitant]
     Indication: ANAESTHETIC PREMEDICATION
     Route: 048
     Dates: start: 201112, end: 201112
  9. LAUGHING GAS [Concomitant]
     Indication: INDUCTION OF ANAESTHESIA
     Route: 055
     Dates: start: 201112, end: 201112
  10. REMIFENTANIL HYDROCHLORIDE [Concomitant]
     Indication: GENERAL ANAESTHESIA
     Route: 042
     Dates: start: 201105, end: 201105
  11. REMIFENTANIL HYDROCHLORIDE [Concomitant]
     Indication: MAINTENANCE OF ANAESTHESIA
     Route: 042
     Dates: start: 201105, end: 201105
  12. REMIFENTANIL HYDROCHLORIDE [Concomitant]
     Indication: GENERAL ANAESTHESIA
     Route: 042
  13. REMIFENTANIL HYDROCHLORIDE [Concomitant]
     Indication: MAINTENANCE OF ANAESTHESIA
     Route: 042
  14. SEVOFLURANE [Concomitant]
     Indication: INDUCTION OF ANAESTHESIA
     Route: 065

REACTIONS (4)
  - Atrioventricular block second degree [Recovered/Resolved]
  - Cough [Recovered/Resolved]
  - Bradycardia [Recovered/Resolved]
  - Blood pressure decreased [Recovered/Resolved]
